FAERS Safety Report 7728909-1 (Version None)
Quarter: 2011Q3

REPORT INFORMATION
  Report Type: 
  Country: None (occurrence: None)
  Receive Date: 20110831
  Receipt Date: 20110824
  Transmission Date: 20111222
  Serious: Yes (Death, Life-Threatening)
  Sender: FDA-Public Use
  Company Number: 122070

PATIENT
  Age: 49 Year
  Sex: Female

DRUGS (1)
  1. CERUBIDINE [Suspect]
     Indication: ACUTE LEUKAEMIA
     Dosage: 60MG, 1X/DAY, IV
     Route: 042
     Dates: start: 20090206, end: 20090208

REACTIONS (2)
  - HEPATOSPLENOMEGALY [None]
  - VENOOCCLUSIVE LIVER DISEASE [None]
